FAERS Safety Report 16471141 (Version 1)
Quarter: 2019Q2

REPORT INFORMATION
  Report Type: Not Available
  Country: US (occurrence: US)
  Receive Date: 20190624
  Receipt Date: 20190624
  Transmission Date: 20190711
  Serious: Yes (Other)
  Sender: FDA-Public Use
  Company Number: US-SERVIER-S19006537

PATIENT

DRUGS (6)
  1. TN UNSPECIFIED [VINCRISTINE SULFATE] [Suspect]
     Active Substance: VINCRISTINE SULFATE
     Indication: B-CELL TYPE ACUTE LEUKAEMIA
     Dosage: 1.5 MG/M2, DAYS 1,8,15,22
     Route: 042
  2. ONCASPAR [Suspect]
     Active Substance: PEGASPARGASE
     Indication: B-CELL TYPE ACUTE LEUKAEMIA
     Dosage: 2500 IU/M2, OVER 1?2?H (DAYS 4,15, 43)
     Route: 042
  3. TN UNSPECIFIED [METHOTREXATE SODIUM] [Suspect]
     Active Substance: METHOTREXATE SODIUM
     Indication: B-CELL TYPE ACUTE LEUKAEMIA
     Dosage: UNK, DAYS 8,29 FOR CNS1/2 OR DAYS 8,15,22,29 FOR CNS3
     Route: 037
  4. TN UNSPECIFIED [DAUNORUBICIN HYDROCHLORIDE] [Suspect]
     Active Substance: DAUNORUBICIN HYDROCHLORIDE
     Indication: B-CELL TYPE ACUTE LEUKAEMIA
     Dosage: 25 MG/M2, DAYS 1,8,15,22
     Route: 042
  5. TN UNSPECIFIED [CYTARABINE] [Suspect]
     Active Substance: CYTARABINE
     Indication: B-CELL TYPE ACUTE LEUKAEMIA
     Dosage: UNK, ON D1
     Route: 037
  6. TN UNSPECIFIED [PREDNISONE ACETATE] [Suspect]
     Active Substance: PREDNISONE ACETATE
     Indication: B-CELL TYPE ACUTE LEUKAEMIA
     Dosage: 30 MG/M2, BID, ON DAYS 1-28
     Route: 048

REACTIONS (4)
  - Transaminases increased [Unknown]
  - Hyperbilirubinaemia [Recovering/Resolving]
  - Hepatic steatosis [Unknown]
  - Liver injury [Unknown]

NARRATIVE: CASE EVENT DATE: 2019
